FAERS Safety Report 26166090 (Version 1)
Quarter: 2025Q4

REPORT INFORMATION
  Report Type: Report from Study
  Country: US (occurrence: US)
  Receive Date: 20251216
  Receipt Date: 20251216
  Transmission Date: 20260118
  Serious: Yes (Other)
  Sender: ABBVIE
  Company Number: US-ABBVIE-6587152

PATIENT
  Age: 69 Year
  Sex: Female

DRUGS (1)
  1. RINVOQ [Suspect]
     Active Substance: UPADACITINIB
     Indication: Product used for unknown indication
     Route: 048
     Dates: start: 20221201, end: 2024

REACTIONS (7)
  - Dental implantation [Recovered/Resolved]
  - COVID-19 [Recovered/Resolved]
  - Device related infection [Recovered/Resolved]
  - Arthralgia [Recovered/Resolved]
  - COVID-19 [Unknown]
  - Pain in extremity [Recovered/Resolved]
  - Pyrexia [Recovered/Resolved]

NARRATIVE: CASE EVENT DATE: 20240101
